FAERS Safety Report 16318273 (Version 2)
Quarter: 2019Q3

REPORT INFORMATION
  Report Type: Spontaneous
  Country: DE (occurrence: DE)
  Receive Date: 20190516
  Receipt Date: 20190703
  Transmission Date: 20191004
  Serious: Yes (Other)
  Sender: FDA-Public Use
  Company Number: DE-AMGEN-DEUSP2019075438

PATIENT
  Age: 59 Year
  Sex: Female

DRUGS (1)
  1. PARSABIV [Suspect]
     Active Substance: ETELCALCETIDE HYDROCHLORIDE
     Indication: HYPERPARATHYROIDISM PRIMARY
     Dosage: 7.5 MILLIGRAM, 3 TIMES/WK
     Route: 065

REACTIONS (4)
  - Blood calcium decreased [Unknown]
  - Asthenia [Unknown]
  - Electrocardiogram QT prolonged [Unknown]
  - Malaise [Unknown]
